FAERS Safety Report 4434321-3 (Version None)
Quarter: 2004Q3

REPORT INFORMATION
  Report Type: 
  Country: None (occurrence: None)
  Receive Date: 20040726
  Receipt Date: 20040315
  Transmission Date: 20050211
  Serious: No
  Sender: FDA-Public Use
  Company Number: US_0403101304

PATIENT
  Age: 60 Year
  Sex: Female

DRUGS (2)
  1. FORTEO [Suspect]
     Dosage: 20 UG DAY
     Dates: start: 20040127
  2. PREDNISONE [Concomitant]

REACTIONS (8)
  - ARTHRALGIA [None]
  - FLUID RETENTION [None]
  - HYPOKINESIA [None]
  - INJECTION SITE HAEMORRHAGE [None]
  - INSOMNIA [None]
  - MUSCULOSKELETAL DISCOMFORT [None]
  - SLEEP DISORDER [None]
  - SWELLING [None]
